FAERS Safety Report 12917768 (Version 2)
Quarter: 2016Q4

REPORT INFORMATION
  Report Type: Spontaneous
  Country: US (occurrence: US)
  Receive Date: 20161107
  Receipt Date: 20161130
  Transmission Date: 20170207
  Serious: Yes (Hospitalization)
  Sender: FDA-Public Use
  Company Number: US-BEH-2016074854

PATIENT
  Sex: Female
  Weight: 68.27 kg

DRUGS (10)
  1. HIZENTRA [Suspect]
     Active Substance: HUMAN IMMUNOGLOBULIN G
     Indication: IMMUNODEFICIENCY COMMON VARIABLE
     Dosage: 9 G, QW
     Route: 058
     Dates: start: 20150910
  2. PROAIR HFA [Concomitant]
     Active Substance: ALBUTEROL SULFATE
  3. MEDROL [Concomitant]
     Active Substance: METHYLPREDNISOLONE
  4. HIZENTRA [Suspect]
     Active Substance: HUMAN IMMUNOGLOBULIN G
     Dosage: UNK
     Route: 058
  5. PREDNISONE. [Concomitant]
     Active Substance: PREDNISONE
  6. AZELASTINE [Concomitant]
     Active Substance: AZELASTINE
  7. AMOXICILLIN. [Concomitant]
     Active Substance: AMOXICILLIN
  8. LEVAQUIN [Concomitant]
     Active Substance: LEVOFLOXACIN
  9. ALBUTEROL                          /00139501/ [Concomitant]
     Active Substance: ALBUTEROL
  10. FLONASE [Concomitant]
     Active Substance: FLUTICASONE PROPIONATE

REACTIONS (6)
  - Gastrointestinal disorder [Unknown]
  - Intra-abdominal fluid collection [Unknown]
  - Pelvic inflammatory disease [Unknown]
  - Abdominal pain [Unknown]
  - Hernia [Unknown]
  - Abdominal lymphadenopathy [Unknown]
